FAERS Safety Report 4600253-0 (Version None)
Quarter: 2005Q1

REPORT INFORMATION
  Report Type: 
  Country: None (occurrence: None)
  Receive Date: 20050127
  Receipt Date: 20041103
  Transmission Date: 20050727
  Serious: No
  Sender: FDA-Public Use
  Company Number: USA041183053

PATIENT
  Age: 8 Year
  Sex: Male
  Weight: 57 kg

DRUGS (1)
  1. STRATTERA [Suspect]
     Dosage: 80 MG/AT NIGHT
     Dates: start: 20041001

REACTIONS (3)
  - ABNORMAL BEHAVIOUR [None]
  - INCREASED APPETITE [None]
  - MIDDLE INSOMNIA [None]
